FAERS Safety Report 8113197-7 (Version None)
Quarter: 2012Q1

REPORT INFORMATION
  Report Type: 
  Country: None (occurrence: None)
  Receive Date: 20120203
  Receipt Date: 20120120
  Transmission Date: 20120608
  Serious: Yes (Death)
  Sender: FDA-Public Use
  Company Number: US-MYLANLABS-2012S1001591

PATIENT
  Age: 52 Year
  Sex: Female
  Weight: 60.78 kg

DRUGS (14)
  1. TRAZODONE HCL [Suspect]
  2. LAMOTRIGINE [Suspect]
  3. PROMETHAZINE [Suspect]
  4. FENTANYL-100 [Suspect]
     Dates: start: 20100101, end: 20100101
  5. ESTRIN [Concomitant]
  6. OXYBUTYNIN [Suspect]
  7. CLONAZEPAM [Concomitant]
  8. TRIMETHOPRIM + SULFAMETHOXAZOLE [Concomitant]
  9. FENTANYL-100 [Suspect]
     Indication: PAIN
     Dates: start: 20100101, end: 20100101
  10. HYDROMORPHONE HCL [Concomitant]
  11. DIVALPROEX SODIUM [Concomitant]
  12. CITALOPRAM HYDROBROMIDE [Suspect]
  13. LEVOTHROID [Concomitant]
  14. CIPROFLOXACIN [Concomitant]

REACTIONS (2)
  - OVERDOSE [None]
  - TOXICITY TO VARIOUS AGENTS [None]
